FAERS Safety Report 8165267-5 (Version None)
Quarter: 2012Q1

REPORT INFORMATION
  Report Type: 
  Country: None (occurrence: None)
  Receive Date: 20120222
  Receipt Date: 20120222
  Transmission Date: 20120608
  Serious: Yes (Other)
  Sender: FDA-Public Use
  Company Number: None

PATIENT
  Age: 50 Year
  Sex: Male
  Weight: 104.5 kg

DRUGS (2)
  1. LEVAQUIN [Suspect]
     Indication: SINUSITIS
     Dosage: 10 PILLS ORAL
     Route: 048
     Dates: start: 20110418, end: 20110419
  2. AVELOX [Suspect]
     Indication: SINUSITIS
     Dosage: 7 PILLS ORAL
     Route: 048
     Dates: start: 20110303, end: 20110311

REACTIONS (8)
  - ARTHRALGIA [None]
  - ROTATOR CUFF SYNDROME [None]
  - HYPOAESTHESIA [None]
  - TREMOR [None]
  - COLITIS [None]
  - ANXIETY [None]
  - INSOMNIA [None]
  - NEURALGIA [None]
